FAERS Safety Report 23027508 (Version 3)
Quarter: 2023Q4

REPORT INFORMATION
  Report Type: Spontaneous
  Country: None (occurrence: PL)
  Receive Date: 20231004
  Receipt Date: 20231018
  Transmission Date: 20240109
  Serious: Yes (Hospitalization)
  Sender: FDA-Public Use
  Company Number: PL-B.Braun Medical Inc.-2146653

PATIENT
  Age: 31 Year
  Sex: Male

DRUGS (8)
  1. ACETAMINOPHEN [Suspect]
     Active Substance: ACETAMINOPHEN
     Indication: Analgesic therapy
  2. IBUPROFEN [Suspect]
     Active Substance: IBUPROFEN
  3. MELOXICAM [Suspect]
     Active Substance: MELOXICAM
  4. METAMIZOLE [Suspect]
     Active Substance: METAMIZOLE
  5. DOXYLAMINE [Concomitant]
     Active Substance: DOXYLAMINE
  6. DICLOFENAC [Concomitant]
     Active Substance: DICLOFENAC
  7. CIPROFLOXACIN [Concomitant]
     Active Substance: CIPROFLOXACIN
  8. SERTRALINE [Concomitant]
     Active Substance: SERTRALINE HYDROCHLORIDE

REACTIONS (1)
  - Drug ineffective [None]
